FAERS Safety Report 15310905 (Version 1)
Quarter: 2018Q3

REPORT INFORMATION
  Report Type: Spontaneous
  Country: US (occurrence: US)
  Receive Date: 20180813
  Receipt Date: 20180813
  Transmission Date: 20181010
  Serious: Yes (Other)
  Sender: FDA-Public Use
  Company Number: None

PATIENT
  Age: 29 Year
  Sex: Female
  Weight: 79.2 kg

DRUGS (3)
  1. LEVOTHYROXINE 125MCG [Suspect]
     Active Substance: LEVOTHYROXINE SODIUM
     Indication: AUTOIMMUNE THYROIDITIS
     Dosage: ?          QUANTITY:1 TABLET(S);?
     Route: 048
     Dates: start: 20180604, end: 20180804
  2. VITAMIN D [Concomitant]
     Active Substance: CHOLECALCIFEROL
  3. SYNTHROID [Concomitant]
     Active Substance: LEVOTHYROXINE SODIUM

REACTIONS (10)
  - Tonsillitis [None]
  - Muscle tightness [None]
  - Dysphagia [None]
  - Fungal infection [None]
  - Swelling [None]
  - Tongue eruption [None]
  - Product substitution issue [None]
  - Swollen tongue [None]
  - Inability to afford medication [None]
  - Pharyngitis streptococcal [None]

NARRATIVE: CASE EVENT DATE: 20180711
